FAERS Safety Report 8516173-5 (Version None)
Quarter: 2012Q3

REPORT INFORMATION
  Report Type: 
  Country: None (occurrence: None)
  Receive Date: 20120717
  Receipt Date: 20120711
  Transmission Date: 20120928
  Serious: Yes (Hospitalization)
  Sender: FDA-Public Use
  Company Number: CA-ROCHE-1051372

PATIENT
  Sex: Female

DRUGS (1)
  1. XOLAIR [Suspect]
     Indication: ASTHMA
     Route: 058
     Dates: start: 20110803

REACTIONS (6)
  - PYREXIA [None]
  - SLEEP TERROR [None]
  - PULMONARY OEDEMA [None]
  - DYSPNOEA [None]
  - ASTHMA [None]
  - CHILLS [None]
